FAERS Safety Report 18678973 (Version 1)
Quarter: 2020Q4

REPORT INFORMATION
  Report Type: Spontaneous
  Country: US (occurrence: US)
  Receive Date: 20201229
  Receipt Date: 20201229
  Transmission Date: 20210114
  Serious: Yes (Hospitalization, Other)
  Sender: FDA-Public Use
  Company Number: US-MYLANLABS-2020M1104117

PATIENT
  Age: 81 Year
  Sex: Female
  Weight: 72.57 kg

DRUGS (4)
  1. TIKOSYN [Suspect]
     Active Substance: DOFETILIDE
     Indication: ATRIAL FIBRILLATION
     Dosage: UNK
     Dates: start: 20201029
  2. LEVOTHYROXINE. [Suspect]
     Active Substance: LEVOTHYROXINE
     Indication: PRODUCT USED FOR UNKNOWN INDICATION
     Dosage: UNK
  3. DOFETILIDE. [Suspect]
     Active Substance: DOFETILIDE
     Indication: ATRIAL FIBRILLATION
     Dosage: 2, 125MCG IN THE MORN AND 1, 125 MCG AT NIGHT
     Dates: start: 20201029
  4. AMIODARONE [Suspect]
     Active Substance: AMIODARONE
     Indication: ATRIAL FIBRILLATION
     Dosage: LOADING DOSE TO START FOR THE WEEK AND THEN TWICE A DAY

REACTIONS (9)
  - Drug ineffective [Unknown]
  - Fatigue [Unknown]
  - Blood glucose increased [Unknown]
  - Toxicity to various agents [Recovered/Resolved]
  - Atrial fibrillation [Not Recovered/Not Resolved]
  - Alopecia [Unknown]
  - Dyspnoea [Unknown]
  - Pyrexia [Unknown]
  - Glomerulonephritis [Unknown]

NARRATIVE: CASE EVENT DATE: 20201029
